FAERS Safety Report 23815615 (Version 1)
Quarter: 2024Q2

REPORT INFORMATION
  Report Type: Other
  Country: CN (occurrence: None)
  Receive Date: 20240503
  Receipt Date: 20240503
  Transmission Date: 20240716
  Serious: Yes (Other)
  Sender: FDA-Public Use
  Company Number: CN-ROCHE-3556258

PATIENT
  Age: 56 Year
  Sex: Male

DRUGS (4)
  1. BEVACIZUMAB [Suspect]
     Active Substance: BEVACIZUMAB
     Indication: Lung adenocarcinoma
     Dosage: AS SECOND LINE THERAPY FOR SIX CYCLES AND FOLLOWED BY A MAINTENANCE THERAPY OF FOUR CYCLES
     Route: 065
  2. PEMETREXED [Suspect]
     Active Substance: PEMETREXED
     Indication: Lung adenocarcinoma
     Dosage: AS FIRST LINE THERAPY FOR FOUR CYCLES
     Route: 065
  3. PEMETREXED [Suspect]
     Active Substance: PEMETREXED
     Dosage: AS SECOND LINE THERAPY FOR SIX CYCLES AND FOLLOWED BY A MAINTENANCE THERAPY OF FOUR CYCLES
     Route: 065
  4. CARBOPLATIN [Suspect]
     Active Substance: CARBOPLATIN
     Indication: Lung adenocarcinoma
     Dosage: AS SECOND LINE THERAPY FOR SIX CYCLES
     Route: 065

REACTIONS (1)
  - Disease progression [Unknown]
